FAERS Safety Report 16053012 (Version 1)
Quarter: 2019Q1

REPORT INFORMATION
  Report Type: Report from Study
  Country: US (occurrence: US)
  Receive Date: 20190308
  Receipt Date: 20190308
  Transmission Date: 20190418
  Serious: Yes (Other)
  Sender: FDA-Public Use
  Company Number: US-UCBSA-2019008856

PATIENT
  Age: 7 Year
  Sex: Female

DRUGS (13)
  1. LEVETIRACETAM. [Suspect]
     Active Substance: LEVETIRACETAM
     Indication: SEIZURE
     Dosage: UNK
  2. CANNABIDIOL [Suspect]
     Active Substance: CANNABIDIOL
     Indication: SEIZURE
     Dosage: 5 MG/KG/D
  3. LAMOTRIGINE. [Concomitant]
     Active Substance: LAMOTRIGINE
     Indication: MYOCLONUS
  4. LEVETIRACETAM. [Suspect]
     Active Substance: LEVETIRACETAM
     Indication: MYOCLONUS
  5. CANNABIDIOL [Suspect]
     Active Substance: CANNABIDIOL
     Indication: MYOCLONUS
     Dosage: 10 MG/KG/D
  6. CLONAZEPAM. [Concomitant]
     Active Substance: CLONAZEPAM
     Indication: MYOCLONUS
  7. CANNABIDIOL [Suspect]
     Active Substance: CANNABIDIOL
     Dosage: 15 MG/KG/D
  8. CANNABIDIOL [Suspect]
     Active Substance: CANNABIDIOL
     Dosage: 25 MG/KG/D
  9. LEVETIRACETAM. [Suspect]
     Active Substance: LEVETIRACETAM
     Indication: OFF LABEL USE
  10. CANNABIDIOL [Suspect]
     Active Substance: CANNABIDIOL
     Dosage: 20 MG/KG/D
  11. CLONAZEPAM. [Concomitant]
     Active Substance: CLONAZEPAM
     Indication: SEIZURE
     Dosage: UNK
  12. CANNABIDIOL [Suspect]
     Active Substance: CANNABIDIOL
     Dosage: 15 MG/KG/D
  13. LAMOTRIGINE. [Concomitant]
     Active Substance: LAMOTRIGINE
     Indication: SEIZURE
     Dosage: UNK

REACTIONS (3)
  - Seizure [Unknown]
  - Off label use [Unknown]
  - Agitation [Unknown]
